FAERS Safety Report 22311954 (Version 2)
Quarter: 2023Q2

REPORT INFORMATION
  Report Type: Report from Study
  Country: GB (occurrence: GB)
  Receive Date: 20230512
  Receipt Date: 20230519
  Transmission Date: 20230721
  Serious: Yes (Other)
  Sender: FDA-Public Use
  Company Number: GB-002147023-NVSC2020GB025116

PATIENT
  Sex: Male

DRUGS (1)
  1. HYRIMOZ [Suspect]
     Active Substance: ADALIMUMAB-ADAZ
     Indication: Ankylosing spondylitis
     Dosage: 40 MG, Q2W (2 PRE-FILLED DISPOSABLE INJECTION)
     Route: 058
     Dates: start: 201912

REACTIONS (7)
  - Neoplasm malignant [Unknown]
  - Pneumonia [Unknown]
  - Eating disorder [Recovered/Resolved]
  - Malaise [Recovered/Resolved]
  - Pancreatic enzymes abnormal [Recovered/Resolved]
  - Weight decreased [Recovered/Resolved]
  - Lower respiratory tract infection [Not Recovered/Not Resolved]
